FAERS Safety Report 9385058 (Version 2)
Quarter: 2013Q3

REPORT INFORMATION
  Report Type: Report from Study
  Country: JP (occurrence: JP)
  Receive Date: 20130705
  Receipt Date: 20130829
  Transmission Date: 20140515
  Serious: Yes (Other)
  Sender: FDA-Public Use
  Company Number: JP-ABBOTT-13X-087-1111504-00

PATIENT
  Age: 73 Year
  Sex: Male

DRUGS (3)
  1. LIPACREON [Suspect]
     Indication: PANCREATIC CARCINOMA
     Route: 048
     Dates: start: 20121210
  2. LIPACREON [Suspect]
     Indication: PANCREATIC INSUFFICIENCY
  3. IRINOTECAN HYDROCHLORIDE [Suspect]
     Indication: PANCREATIC CARCINOMA
     Route: 041
     Dates: start: 20130218, end: 20130218

REACTIONS (2)
  - Febrile neutropenia [Recovered/Resolved]
  - White blood cell count decreased [Recovered/Resolved]
